FAERS Safety Report 7744127-5 (Version None)
Quarter: 2011Q3

REPORT INFORMATION
  Report Type: 
  Country: None (occurrence: None)
  Receive Date: 20110912
  Receipt Date: 20110902
  Transmission Date: 20111222
  Serious: Yes (Hospitalization)
  Sender: FDA-Public Use
  Company Number: GB-JNJFOC-20110902069

PATIENT
  Age: 84 Year
  Sex: Female

DRUGS (9)
  1. CANDESARTAN CILEXETIL [Concomitant]
  2. LATANOPROST [Concomitant]
  3. ACETAMINOPHEN [Concomitant]
  4. FENTANYL-100 [Concomitant]
  5. ORAMORPH SR [Concomitant]
  6. XARELTO [Suspect]
     Indication: HIP ARTHROPLASTY
     Route: 048
     Dates: start: 20110803, end: 20110823
  7. MAGNESIUM HYDROXIDE [Concomitant]
  8. CITALOPRAM HYDROBROMIDE [Concomitant]
  9. MIRTAZAPINE [Concomitant]

REACTIONS (1)
  - PLATELET COUNT INCREASED [None]
